FAERS Safety Report 21581500 (Version 1)
Quarter: 2022Q4

REPORT INFORMATION
  Report Type: Spontaneous
  Country: US (occurrence: US)
  Receive Date: 20221111
  Receipt Date: 20221111
  Transmission Date: 20230113
  Serious: No
  Sender: FDA-Public Use
  Company Number: US-GLAXOSMITHKLINE-USCH2022AMR042947

PATIENT

DRUGS (1)
  1. SCOPOLAMINE [Suspect]
     Active Substance: SCOPOLAMINE
     Indication: Motion sickness
     Dosage: UNK
     Dates: start: 2022

REACTIONS (3)
  - Vomiting [Unknown]
  - Nausea [Unknown]
  - Illness [Unknown]

NARRATIVE: CASE EVENT DATE: 20220101
